FAERS Safety Report 5161399-4 (Version None)
Quarter: 2006Q4

REPORT INFORMATION
  Report Type: 
  Country: None (occurrence: None)
  Receive Date: 20061130
  Receipt Date: 20061127
  Transmission Date: 20070319
  Serious: Yes (Other)
  Sender: FDA-Public Use
  Company Number: JP-ROCHE-472551

PATIENT
  Age: 50 Year
  Sex: Male

DRUGS (2)
  1. ANEXATE TAB [Suspect]
     Indication: REVERSAL OF SEDATION
     Route: 042
     Dates: start: 20061108
  2. ROHYPNOL [Concomitant]
     Dates: start: 20061108

REACTIONS (1)
  - AGRANULOCYTOSIS [None]
